FAERS Safety Report 5279487-0 (Version None)
Quarter: 2007Q1

REPORT INFORMATION
  Report Type: 
  Country: None (occurrence: None)
  Receive Date: 20070328
  Receipt Date: 20070316
  Transmission Date: 20070707
  Serious: Yes (Hospitalization)
  Sender: FDA-Public Use
  Company Number: CA-PFIZER INC-2006069685

PATIENT
  Sex: Female
  Weight: 54.5 kg

DRUGS (14)
  1. SU-011,248 [Suspect]
     Indication: METASTATIC RENAL CELL CARCINOMA
     Route: 048
  2. CATAPRES [Concomitant]
     Dosage: TEXT:UNKNOWN-FREQ:UNKNOWN
     Route: 048
  3. AVEENO CREAM [Concomitant]
     Dosage: TEXT:UNKNOWN-FREQ:UNKNOWN
     Route: 061
  4. COLACE [Concomitant]
     Dosage: TEXT:UNKNOWN-FREQ:UNKNOWN
     Route: 048
  5. LACTULOSE [Concomitant]
     Dosage: TEXT:UNKNOWN-FREQ:UNKNOWN
     Route: 048
  6. LOPRESSOR [Concomitant]
     Dosage: TEXT:UNKNOWN-FREQ:UNKNOWN
     Route: 048
  7. SENOKOT [Concomitant]
     Dosage: TEXT:UNKNOWN-FREQ:UNKNOWN
     Route: 048
  8. ALDACTONE [Concomitant]
     Dosage: TEXT:UNKNOWN-FREQ:UNKNOWN
     Route: 048
  9. CARDURA [Concomitant]
     Dosage: TEXT:UNKNOWN-FREQ:UNKNOWN
     Route: 048
  10. SYNTHROID [Concomitant]
     Dosage: TEXT:UNKNOWN-FREQ:UNKNOWN
     Route: 048
  11. ATIVAN [Concomitant]
     Dosage: TEXT:UNKNOWN-FREQ:UNKNOWN
     Route: 048
  12. PANTOPRAZOLE SODIUM [Concomitant]
     Dosage: TEXT:UNKNOWN-FREQ:UNKNOWN
     Route: 048
  13. MAALOX FAST BLOCKER [Concomitant]
     Dosage: TEXT:UNKNOWN-FREQ:UNKNOWN
     Route: 048
  14. APRESOLINE [Concomitant]
     Dosage: TEXT:UNKNOWN-FREQ:UNKNOWN
     Route: 048

REACTIONS (1)
  - NEPHROTIC SYNDROME [None]
